FAERS Safety Report 15545111 (Version 1)
Quarter: 2018Q4

REPORT INFORMATION
  Report Type: Spontaneous
  Country: BR (occurrence: BR)
  Receive Date: 20181024
  Receipt Date: 20181024
  Transmission Date: 20190205
  Serious: Yes (Other)
  Sender: FDA-Public Use
  Company Number: BR-B.I. PHARMACEUTICALS,INC./RIDGEFIELD-2018-BI-051410

PATIENT
  Age: 69 Year
  Sex: Male

DRUGS (1)
  1. OFEV [Suspect]
     Active Substance: NINTEDANIB
     Indication: IDIOPATHIC PULMONARY FIBROSIS
     Route: 065
     Dates: end: 201801

REACTIONS (12)
  - Rash [Recovered/Resolved]
  - Idiopathic pulmonary fibrosis [Unknown]
  - Diarrhoea [Unknown]
  - Dyspnoea [Recovered/Resolved]
  - Pleural effusion [Recovered/Resolved]
  - Depression [Unknown]
  - Lung infection [Unknown]
  - Asthenia [Recovered/Resolved]
  - Cor pulmonale [Unknown]
  - Lung infection [Recovered/Resolved]
  - Pericardial effusion [Recovered/Resolved]
  - Chest pain [Recovered/Resolved]

NARRATIVE: CASE EVENT DATE: 201801
